FAERS Safety Report 24726403 (Version 1)
Quarter: 2024Q4

REPORT INFORMATION
  Report Type: Spontaneous
  Country: FR (occurrence: FR)
  Receive Date: 20241212
  Receipt Date: 20241212
  Transmission Date: 20250115
  Serious: Yes (Other)
  Sender: SANOFI AVENTIS
  Company Number: FR-SA-2024SA366334

PATIENT
  Age: 76 Year
  Sex: Male

DRUGS (1)
  1. DUPILUMAB [Suspect]
     Active Substance: DUPILUMAB
     Indication: Neurodermatitis
     Dosage: UNK
     Dates: start: 202312

REACTIONS (11)
  - Eosinophilic fasciitis [Recovering/Resolving]
  - Eosinophilic cellulitis [Recovering/Resolving]
  - Eosinophilia [Recovering/Resolving]
  - Injection site erythema [Recovering/Resolving]
  - Pyrexia [Recovering/Resolving]
  - General physical health deterioration [Recovering/Resolving]
  - Erythema [Recovering/Resolving]
  - Myositis [Recovering/Resolving]
  - Motor dysfunction [Recovering/Resolving]
  - Myalgia [Recovering/Resolving]
  - Inflammation [Recovering/Resolving]
